FAERS Safety Report 5380389-X (Version None)
Quarter: 2007Q3

REPORT INFORMATION
  Report Type: 
  Country: None (occurrence: None)
  Receive Date: 20070706
  Receipt Date: 20070523
  Transmission Date: 20080115
  Serious: No
  Sender: FDA-Public Use
  Company Number: A0652665A

PATIENT
  Age: 50 Year
  Sex: Female

DRUGS (6)
  1. TYKERB [Suspect]
     Indication: BREAST CANCER
     Dosage: 5TAB PER DAY
     Route: 048
     Dates: start: 20070520
  2. XELODA [Concomitant]
  3. LASIX [Concomitant]
  4. OXYGEN [Concomitant]
  5. UNSPECIFIED MEDICATIONS [Concomitant]
  6. UNKNOWN MEDICATION [Concomitant]

REACTIONS (1)
  - DYSPNOEA [None]
